FAERS Safety Report 4319106-0 (Version None)
Quarter: 2004Q1

REPORT INFORMATION
  Report Type: 
  Country: None (occurrence: None)
  Receive Date: 20040318
  Receipt Date: 20040318
  Transmission Date: 20041129
  Serious: Yes (Other)
  Sender: FDA-Public Use
  Company Number: None

PATIENT
  Age: 14 Year
  Sex: Male

DRUGS (1)
  1. ARIPIPRAZOLE [Suspect]
     Dosage: ORAL
     Route: 048

REACTIONS (3)
  - DIFFICULTY IN WALKING [None]
  - DYSTONIA [None]
  - SPEECH DISORDER [None]
